FAERS Safety Report 10197590 (Version 1)
Quarter: 2014Q2

REPORT INFORMATION
  Report Type: Spontaneous
  Country: US (occurrence: US)
  Receive Date: 20140527
  Receipt Date: 20140527
  Transmission Date: 20141212
  Serious: No
  Sender: FDA-Public Use
  Company Number: US-NOVEN-14US009087

PATIENT
  Sex: Female

DRUGS (3)
  1. MINIVELLE [Suspect]
     Indication: HOT FLUSH
     Dosage: 0.1MG/DAY X3, Q 3 DAYS
     Route: 062
     Dates: start: 2013
  2. LYRICA [Concomitant]
     Indication: ARTHRITIS
     Dosage: UNK
  3. ALEVE [Concomitant]
     Indication: ARTHRITIS
     Dosage: UNK

REACTIONS (3)
  - Wrong technique in drug usage process [Not Recovered/Not Resolved]
  - Application site irritation [Not Recovered/Not Resolved]
  - Drug prescribing error [Not Recovered/Not Resolved]
